FAERS Safety Report 4684794-6 (Version None)
Quarter: 2005Q2

REPORT INFORMATION
  Report Type: 
  Country: None (occurrence: None)
  Receive Date: 20050606
  Receipt Date: 20050411
  Transmission Date: 20051028
  Serious: No
  Sender: FDA-Public Use
  Company Number: USA050188918

PATIENT
  Age: 70 Year
  Sex: Female

DRUGS (7)
  1. ALIMTA [Suspect]
     Indication: LUNG CARCINOMA CELL TYPE UNSPECIFIED STAGE IV
     Dosage: 725 MG
     Dates: start: 20041201, end: 20050201
  2. FOLIC ACID [Concomitant]
  3. DECADRON [Concomitant]
  4. VITAMIN B-12 [Concomitant]
  5. DILAUDID [Concomitant]
  6. METHADONE HCL [Concomitant]
  7. ACTIQ (FETANYL CITRATE) [Concomitant]

REACTIONS (1)
  - RASH GENERALISED [None]
